FAERS Safety Report 16087792 (Version 1)
Quarter: 2019Q1

REPORT INFORMATION
  Report Type: Spontaneous
  Country: FR (occurrence: FR)
  Receive Date: 20190319
  Receipt Date: 20190319
  Transmission Date: 20190418
  Serious: Yes (Life-Threatening, Hospitalization)
  Sender: FDA-Public Use
  Company Number: FR-ACCORD-113400

PATIENT
  Age: 65 Year
  Sex: Female
  Weight: 89.1 kg

DRUGS (11)
  1. DEDROGYL [Concomitant]
     Active Substance: CALCIFEDIOL
  2. IRBESARTAN. [Concomitant]
     Active Substance: IRBESARTAN
  3. DOLIPRANE [Concomitant]
     Active Substance: ACETAMINOPHEN
  4. TEMERIT [Concomitant]
     Active Substance: NEBIVOLOL
  5. ALLOPURINOL. [Suspect]
     Active Substance: ALLOPURINOL
     Indication: GOUT
     Route: 048
     Dates: start: 20180830, end: 20180904
  6. FEROGRAD VITAMIN C [Concomitant]
  7. ESOMEPRAZOLE/ESOMEPRAZOLE MAGNESIUM/ESOMEPRAZOLE SODIUM [Concomitant]
  8. LEXOMIL [Concomitant]
     Active Substance: BROMAZEPAM
     Dosage: 12 MG
  9. COLCHICINE OPOCALCIUM [Suspect]
     Active Substance: COLCHICINE
     Indication: GOUT
     Dosage: 1 MG
     Route: 048
     Dates: start: 20180426, end: 20180831
  10. SIMVASTATIN. [Concomitant]
     Active Substance: SIMVASTATIN
  11. LASILIX [Concomitant]
     Active Substance: FUROSEMIDE

REACTIONS (5)
  - Eosinophilia [Not Recovered/Not Resolved]
  - Hepatocellular injury [Recovered/Resolved]
  - Hypersensitivity [Recovered/Resolved]
  - Rash morbilliform [Recovered/Resolved]
  - Acute kidney injury [Recovering/Resolving]

NARRATIVE: CASE EVENT DATE: 20180831
